FAERS Safety Report 8866067 (Version 1)
Quarter: 2012Q4

REPORT INFORMATION
  Report Type: 
  Country: US (occurrence: US)
  Receive Date: 20121025
  Receipt Date: 20121025
  Transmission Date: 20130627
  Serious: Yes (Other)
  Sender: FDA-Public Use
  Company Number: US-PFIZER INC-2012265809

PATIENT
  Sex: Male

DRUGS (2)
  1. LYRICA [Suspect]
     Indication: BACK DISORDER
     Dosage: 50 mg, UNK
  2. LYRICA [Suspect]
     Indication: RESTLESS LEG SYNDROME

REACTIONS (6)
  - Surgery [Unknown]
  - Foot deformity [Unknown]
  - Restless legs syndrome [Unknown]
  - Off label use [Unknown]
  - Incorrect dose administered [Unknown]
  - Therapeutic response unexpected [Unknown]
